FAERS Safety Report 24607638 (Version 1)
Quarter: 2024Q4

REPORT INFORMATION
  Report Type: Spontaneous
  Country: PL (occurrence: PL)
  Receive Date: 20241112
  Receipt Date: 20241112
  Transmission Date: 20250115
  Serious: Yes (Other)
  Sender: RANBAXY
  Company Number: PL-SUN PHARMACEUTICAL INDUSTRIES LTD-2024R1-478476

PATIENT
  Age: 31 Year
  Sex: Male

DRUGS (3)
  1. DOXORUBICIN [Suspect]
     Active Substance: DOXORUBICIN
     Indication: Neuroendocrine carcinoma
     Dosage: 50 MILLIGRAM/SQ. METER  3 CYCLES
     Route: 065
     Dates: start: 201902, end: 2019
  2. VINCRISTINE [Suspect]
     Active Substance: VINCRISTINE
     Indication: Neuroendocrine carcinoma
     Dosage: 1.4 MILLIGRAM/SQ. METER 3 CYCLES
     Route: 065
     Dates: start: 201902, end: 2019
  3. CYCLOPHOSPHAMIDE [Suspect]
     Active Substance: CYCLOPHOSPHAMIDE
     Indication: Neuroendocrine carcinoma
     Dosage: 800 MILLIGRAM/SQ. METER 3 CYCLES
     Route: 065
     Dates: start: 201902, end: 2019

REACTIONS (2)
  - Resorption bone increased [Unknown]
  - Disease progression [Unknown]
